FAERS Safety Report 8548263-5 (Version None)
Quarter: 2012Q3

REPORT INFORMATION
  Report Type: 
  Country: None (occurrence: None)
  Receive Date: 20120730
  Receipt Date: 20120716
  Transmission Date: 20120928
  Serious: No
  Sender: FDA-Public Use
  Company Number: US-JNJFOC-20120707834

PATIENT
  Sex: Female
  Weight: 88.91 kg

DRUGS (3)
  1. DURAGESIC-100 [Suspect]
     Indication: ARTHRITIS
     Route: 062
     Dates: start: 20040101, end: 20090101
  2. DURAGESIC-100 [Suspect]
     Route: 062
     Dates: start: 20090101
  3. OXYCONTIN [Concomitant]
     Indication: PAIN
     Route: 048
     Dates: start: 19960101

REACTIONS (5)
  - PRODUCT QUALITY ISSUE [None]
  - MALAISE [None]
  - INCORRECT DRUG ADMINISTRATION RATE [None]
  - WRONG TECHNIQUE IN DRUG USAGE PROCESS [None]
  - PRODUCT PACKAGING QUANTITY ISSUE [None]
